FAERS Safety Report 25540895 (Version 2)
Quarter: 2025Q3

REPORT INFORMATION
  Report Type: Spontaneous
  Country: US (occurrence: US)
  Receive Date: 20250710
  Receipt Date: 20250806
  Transmission Date: 20251020
  Serious: Yes (Other)
  Sender: ELI LILLY AND COMPANY
  Company Number: US-ELI_LILLY_AND_COMPANY-US202507002172

PATIENT
  Age: 38 Year
  Sex: Female

DRUGS (4)
  1. ZEPBOUND [Suspect]
     Active Substance: TIRZEPATIDE
     Indication: Weight control
     Route: 065
     Dates: start: 20250616
  2. ZEPBOUND [Suspect]
     Active Substance: TIRZEPATIDE
     Indication: Lipoedema
     Route: 065
  3. ZEPBOUND [Suspect]
     Active Substance: TIRZEPATIDE
     Indication: Lymphatic disorder
  4. ZEPBOUND [Suspect]
     Active Substance: TIRZEPATIDE
     Indication: Cardiovascular disorder

REACTIONS (7)
  - Dyspnoea [Unknown]
  - Suspected transmission of an infectious agent via product [Unknown]
  - Throat tightness [Unknown]
  - Injection site cellulitis [Not Recovered/Not Resolved]
  - Urticaria [Recovering/Resolving]
  - Paraesthesia oral [Unknown]
  - Cough [Not Recovered/Not Resolved]

NARRATIVE: CASE EVENT DATE: 20250624
